FAERS Safety Report 9693388 (Version 1)
Quarter: 2013Q4

REPORT INFORMATION
  Report Type: Spontaneous
  Country: US (occurrence: None)
  Receive Date: 20131114
  Receipt Date: 20131114
  Transmission Date: 20140711
  Serious: Yes (Hospitalization, Other)
  Sender: FDA-Public Use
  Company Number: 13-04623

PATIENT
  Age: 68 Year
  Sex: Female

DRUGS (6)
  1. ALBUTEROL SULFATE INHALATION SOL .083% NEPHRON PHARMACEUTICALS CORP [Suspect]
     Indication: ASTHMA
     Dosage: 1 VIAL PO Q4H 054
     Route: 048
  2. ALBUTEROL SULFATE INHALATION SOL .083% NEPHRON PHARMACEUTICALS CORP [Suspect]
     Indication: CHRONIC OBSTRUCTIVE PULMONARY DISEASE
     Dosage: 1 VIAL PO Q4H 054
     Route: 048
  3. ALBUTEROL SULFATE INHALATION SOL .083% NEPHRON PHARMACEUTICALS CORP [Suspect]
     Indication: EMPHYSEMA
     Dosage: 1 VIAL PO Q4H 054
     Route: 048
  4. SPIRIVA [Concomitant]
  5. ADVAIR [Concomitant]
  6. BLOOD PRESSURE MEDICATION [Concomitant]

REACTIONS (3)
  - Chest pain [None]
  - Hypotension [None]
  - Asthma [None]
